FAERS Safety Report 12658594 (Version 1)
Quarter: 2016Q3

REPORT INFORMATION
  Report Type: Spontaneous
  Country: US (occurrence: None)
  Receive Date: 20160816
  Receipt Date: 20160816
  Transmission Date: 20161109
  Serious: Yes (Life-Threatening, Hospitalization, Disabling)
  Sender: FDA-Public Use
  Company Number: None

PATIENT
  Age: 56 Year
  Sex: Female
  Weight: 74.84 kg

DRUGS (9)
  1. TOPROL XL [Concomitant]
     Active Substance: METOPROLOL SUCCINATE
  2. CALCITRIOL. [Concomitant]
     Active Substance: CALCITRIOL
  3. VITAMIND [Concomitant]
  4. PRILOSEC [Suspect]
     Active Substance: OMEPRAZOLE MAGNESIUM
     Indication: GASTROOESOPHAGEAL REFLUX DISEASE
     Dosage: IN THE MORNING TAKEN BY MOUTH
     Route: 048
     Dates: end: 20160306
  5. IRON [Concomitant]
     Active Substance: IRON
  6. PEPCID [Concomitant]
     Active Substance: FAMOTIDINE
  7. FISH OIL [Concomitant]
     Active Substance: FISH OIL
  8. AMARYL [Concomitant]
     Active Substance: GLIMEPIRIDE
  9. CALCIUM [Concomitant]
     Active Substance: CALCIUM

REACTIONS (4)
  - Renal failure [None]
  - Tubulointerstitial nephritis [None]
  - Influenza like illness [None]
  - Renal transplant [None]

NARRATIVE: CASE EVENT DATE: 20160306
